FAERS Safety Report 6887802-7 (Version None)
Quarter: 2010Q3

REPORT INFORMATION
  Report Type: 
  Country: None (occurrence: None)
  Receive Date: 20100730
  Receipt Date: 20100716
  Transmission Date: 20110219
  Serious: Yes (Other)
  Sender: FDA-Public Use
  Company Number: PHHY2010CH47909

PATIENT
  Sex: Male
  Weight: 4.45 kg

DRUGS (3)
  1. TEGRETOL [Suspect]
     Dosage: UNK
     Route: 064
     Dates: start: 20090202, end: 20091014
  2. HUMINSULIN BASAL [Suspect]
     Dosage: 28 IU, QD
     Route: 064
  3. FOLIC ACID [Concomitant]
     Dosage: UNK
     Route: 064

REACTIONS (6)
  - CEREBRAL HAEMORRHAGE NEONATAL [None]
  - DRUG EXPOSURE DURING PREGNANCY [None]
  - FOETAL HEART RATE ABNORMAL [None]
  - LARGE FOR DATES BABY [None]
  - NEONATAL ASPHYXIA [None]
  - NEONATAL RESPIRATORY ARREST [None]
